FAERS Safety Report 5600073-4 (Version None)
Quarter: 2008Q1

REPORT INFORMATION
  Report Type: 
  Country: None (occurrence: None)
  Receive Date: 20080118
  Receipt Date: 20080107
  Transmission Date: 20080703
  Serious: No
  Sender: FDA-Public Use
  Company Number: TPA2008A00041

PATIENT
  Age: 55 Year
  Sex: Male
  Weight: 81.6475 kg

DRUGS (3)
  1. ROZEREM [Suspect]
     Indication: INSOMNIA
     Dosage: 8 MG, HS, PER ORAL; 8 MG, 2 TABLETS HS, PER ORAL
     Route: 048
     Dates: start: 20071228, end: 20080104
  2. ROZEREM [Suspect]
     Indication: INSOMNIA
     Dosage: 8 MG, HS, PER ORAL; 8 MG, 2 TABLETS HS, PER ORAL
     Route: 048
     Dates: start: 20080105
  3. WELLBUTRIN XL [Concomitant]

REACTIONS (4)
  - FEELING ABNORMAL [None]
  - INCORRECT DOSE ADMINISTERED [None]
  - INSOMNIA [None]
  - TREATMENT NONCOMPLIANCE [None]
